FAERS Safety Report 4786132-7 (Version None)
Quarter: 2005Q3

REPORT INFORMATION
  Report Type: 
  Country: None (occurrence: None)
  Receive Date: 20050930
  Receipt Date: 20050107
  Transmission Date: 20060218
  Serious: Yes (Hospitalization)
  Sender: FDA-Public Use
  Company Number: 2005FR-00283

PATIENT
  Age: 58 Year
  Sex: Male

DRUGS (5)
  1. ASPIRIN [Suspect]
     Dosage: ORAL
     Route: 048
     Dates: end: 20041201
  2. ATENOLOL [Concomitant]
  3. ISOSORBIDE DINITRATE [Concomitant]
  4. SIMVASTATIN [Concomitant]
  5. ALBUTEROL [Concomitant]

REACTIONS (1)
  - GASTROINTESTINAL HAEMORRHAGE [None]
